FAERS Safety Report 25106241 (Version 1)
Quarter: 2025Q1

REPORT INFORMATION
  Report Type: Spontaneous
  Country: RU (occurrence: RU)
  Receive Date: 20250321
  Receipt Date: 20250321
  Transmission Date: 20250409
  Serious: Yes (Other)
  Sender: BAYER HEALTHCARE PHARMACEUTICALS INC.
  Company Number: None

PATIENT
  Age: 71 Year
  Sex: Male
  Weight: 93 kg

DRUGS (1)
  1. ULTRAVIST [Suspect]
     Active Substance: IOPROMIDE
     Indication: Angiogram
     Route: 042
     Dates: start: 20250220, end: 20250220

REACTIONS (3)
  - Rash [Recovering/Resolving]
  - Sneezing [Recovered/Resolved]
  - Nasal congestion [Recovering/Resolving]

NARRATIVE: CASE EVENT DATE: 20250220
